FAERS Safety Report 6607712-X (Version None)
Quarter: 2010Q1

REPORT INFORMATION
  Report Type: 
  Country: None (occurrence: None)
  Receive Date: 20100301
  Receipt Date: 20100218
  Transmission Date: 20100710
  Serious: Yes (Other)
  Sender: FDA-Public Use
  Company Number: CHPA2010US03471

PATIENT
  Sex: Male

DRUGS (2)
  1. VOLTAREN [Suspect]
     Dosage: UNK, UNK
     Route: 061
  2. CELEBREX [Suspect]
     Dosage: UNK, UNK

REACTIONS (2)
  - RESPIRATORY DISORDER [None]
  - URTICARIA [None]
